FAERS Safety Report 12423522 (Version 1)
Quarter: 2016Q2

REPORT INFORMATION
  Report Type: Spontaneous
  Country: US (occurrence: US)
  Receive Date: 20160601
  Receipt Date: 20160601
  Transmission Date: 20160815
  Serious: No
  Sender: FDA-Public Use
  Company Number: US-NOVEN PHARMACEUTICALS, INC.-US2015000312

PATIENT
  Age: 35 Year
  Sex: Female

DRUGS (7)
  1. DAYTRANA [Suspect]
     Active Substance: METHYLPHENIDATE
     Indication: NARCOLEPSY
     Dosage: 20 MG, UNK
     Route: 062
     Dates: start: 20150115
  2. ZIAC [Concomitant]
     Active Substance: BISOPROLOL FUMARATE\HYDROCHLOROTHIAZIDE
     Indication: HYPERTENSION
     Dosage: 2.5 MG, QD
     Route: 048
  3. LEXAPRO [Concomitant]
     Active Substance: ESCITALOPRAM OXALATE
     Indication: BLOOD PRESSURE MEASUREMENT
     Dosage: 10 MG, QD
  4. FLUMAZENIL. [Concomitant]
     Active Substance: FLUMAZENIL
     Indication: NARCOLEPSY
     Dosage: 6 MG, UNK, 2 SUBLINGUAL PILLS 4 TIMES A DAY
     Route: 048
  5. FLUMAZENIL. [Concomitant]
     Active Substance: FLUMAZENIL
     Indication: NARCOLEPSY
     Dosage: 12 MG, UNK
     Route: 061
  6. SYNTHROID [Concomitant]
     Active Substance: LEVOTHYROXINE SODIUM
     Indication: HYPOTHYROIDISM
     Dosage: 150 MG, UNK
  7. DESOXYN [Concomitant]
     Active Substance: METHAMPHETAMINE HYDROCHLORIDE
     Indication: NARCOLEPSY
     Dosage: 5 MG, QD

REACTIONS (4)
  - Application site erythema [Unknown]
  - Application site reaction [Unknown]
  - Drug prescribing error [Unknown]
  - Application site irritation [Unknown]

NARRATIVE: CASE EVENT DATE: 20150115
